FAERS Safety Report 8087096-3 (Version None)
Quarter: 2012Q1

REPORT INFORMATION
  Report Type: 
  Country: None (occurrence: None)
  Receive Date: 20120128
  Receipt Date: 20110523
  Transmission Date: 20120608
  Serious: No
  Sender: FDA-Public Use
  Company Number: US-ABBOTT-11P-163-0727835-00

PATIENT
  Sex: Female
  Weight: 55.388 kg

DRUGS (3)
  1. HUMIRA [Suspect]
     Indication: CROHN'S DISEASE
     Dates: start: 20101101
  2. PREDNISONE TAB [Concomitant]
     Indication: CROHN'S DISEASE
  3. APRISO [Concomitant]
     Indication: CROHN'S DISEASE

REACTIONS (3)
  - GASTRIC DISORDER [None]
  - DIARRHOEA [None]
  - ABDOMINAL PAIN UPPER [None]
